FAERS Safety Report 23404963 (Version 2)
Quarter: 2024Q1

REPORT INFORMATION
  Report Type: Spontaneous
  Country: JP (occurrence: JP)
  Receive Date: 20240116
  Receipt Date: 20240122
  Transmission Date: 20240410
  Serious: Yes (Other)
  Sender: FDA-Public Use
  Company Number: JP-BAYER-2024A004926

PATIENT
  Age: 7 Decade
  Sex: Female

DRUGS (3)
  1. RIVAROXABAN [Suspect]
     Active Substance: RIVAROXABAN
     Indication: Venous thrombosis limb
     Dosage: UNK
     Route: 048
  2. GEMCITABINE [Concomitant]
     Active Substance: GEMCITABINE
     Indication: Cholangiocarcinoma
  3. GEMCITABINE [Concomitant]
     Active Substance: GEMCITABINE
     Indication: Metastases to lymph nodes

REACTIONS (2)
  - Tumour haemorrhage [Recovering/Resolving]
  - Cholangitis acute [Recovering/Resolving]
